FAERS Safety Report 9710574 (Version 1)
Quarter: 2013Q4

REPORT INFORMATION
  Report Type: Spontaneous
  Country: US (occurrence: US)
  Receive Date: 20131126
  Receipt Date: 20131126
  Transmission Date: 20140711
  Serious: No
  Sender: FDA-Public Use
  Company Number: US-BRISTOL-MYERS SQUIBB COMPANY-18906529

PATIENT
  Age: 66 Year
  Sex: Male
  Weight: 86.62 kg

DRUGS (4)
  1. BYETTA PEN DISPOSABLE [Suspect]
  2. LISINOPRIL [Concomitant]
  3. SIMVASTATIN [Concomitant]
  4. METFORMIN [Concomitant]

REACTIONS (2)
  - Weight decreased [Not Recovered/Not Resolved]
  - Decreased appetite [Not Recovered/Not Resolved]
